FAERS Safety Report 24387734 (Version 1)
Quarter: 2024Q4

REPORT INFORMATION
  Report Type: Spontaneous
  Country: FR (occurrence: FR)
  Receive Date: 20241002
  Receipt Date: 20241002
  Transmission Date: 20250115
  Serious: Yes (Hospitalization)
  Sender: CELLTRION
  Company Number: None

PATIENT

DRUGS (4)
  1. RITUXIMAB [Suspect]
     Active Substance: RITUXIMAB
     Indication: Mantle cell lymphoma
     Dosage: 375 MG/M2, EVERY 1 DAY
     Dates: start: 20230630, end: 20230630
  2. CYTARABINE [Suspect]
     Active Substance: CYTARABINE
     Indication: Mantle cell lymphoma
     Dosage: 2000 MG/M2, EVERY 1 DAY
     Route: 042
     Dates: start: 20230630, end: 20230701
  3. DEXAMETHASONE [Suspect]
     Active Substance: DEXAMETHASONE
     Indication: Mantle cell lymphoma
     Dosage: 40 MG, EVERY 1 DAY
     Route: 042
     Dates: start: 20230630, end: 20230703
  4. FASTURTEC [Suspect]
     Active Substance: RASBURICASE
     Indication: Mantle cell lymphoma
     Dosage: 60 ML, EVERY 1 DAY
     Route: 042
     Dates: start: 20230630, end: 20230703

REACTIONS (4)
  - Diplopia [Recovering/Resolving]
  - Psychomotor skills impaired [Recovering/Resolving]
  - Balance disorder [Recovering/Resolving]
  - Intentional product use issue [Unknown]

NARRATIVE: CASE EVENT DATE: 20230630
